FAERS Safety Report 25924011 (Version 1)
Quarter: 2025Q4

REPORT INFORMATION
  Report Type: Spontaneous
  Country: US (occurrence: None)
  Receive Date: 20251011
  Receipt Date: 20251011
  Transmission Date: 20260117
  Serious: No
  Sender: FDA-CTU
  Company Number: None

PATIENT
  Age: 37 Year
  Sex: Female
  Weight: 56.25 kg

DRUGS (2)
  1. EMGALITY [Suspect]
     Active Substance: GALCANEZUMAB-GNLM
     Indication: Migraine prophylaxis
     Dates: end: 20251011
  2. SUMATRIPTAN [Concomitant]
     Active Substance: SUMATRIPTAN

REACTIONS (7)
  - Fatigue [None]
  - Brain fog [None]
  - Affect lability [None]
  - Panic attack [None]
  - Suicidal ideation [None]
  - Depression [None]
  - Feeling of despair [None]

NARRATIVE: CASE EVENT DATE: 20251010
